FAERS Safety Report 4285125-6 (Version None)
Quarter: 2004Q1

REPORT INFORMATION
  Report Type: 
  Country: None (occurrence: None)
  Receive Date: 20040204
  Receipt Date: 20040129
  Transmission Date: 20041129
  Serious: Yes (Hospitalization)
  Sender: FDA-Public Use
  Company Number: ZA-GLAXOSMITHKLINE-B0321908A

PATIENT
  Age: 19 Month

DRUGS (3)
  1. LAMIVUDINE [Suspect]
     Indication: HIV INFECTION
     Dosage: 40MG TWICE PER DAY
     Route: 048
     Dates: start: 20030227
  2. EFAVIRENZ [Suspect]
     Indication: HIV INFECTION
     Dosage: 200MG PER DAY
     Route: 048
     Dates: start: 20030227
  3. STAVUDINE [Suspect]
     Indication: HIV INFECTION
     Dosage: 10MG TWICE PER DAY
     Route: 048
     Dates: start: 20030227

REACTIONS (3)
  - IMMUNE RECONSTITUTION SYNDROME [None]
  - LOWER RESPIRATORY TRACT INFECTION [None]
  - SEPSIS [None]
